FAERS Safety Report 7324437-6 (Version None)
Quarter: 2011Q1

REPORT INFORMATION
  Report Type: 
  Country: None (occurrence: None)
  Receive Date: 20110218
  Receipt Date: 20110210
  Transmission Date: 20110831
  Serious: Yes (Hospitalization, Other)
  Sender: FDA-Public Use
  Company Number: JPI-P-013105

PATIENT
  Age: 79 Year
  Sex: Female
  Weight: 54.4316 kg

DRUGS (7)
  1. HEART MEDICATION [Concomitant]
  2. CHOLESTEROL MEDICATION [Concomitant]
  3. XYREM [Suspect]
     Indication: CATAPLEXY
     Dosage: 4.5 GM (2.25 GM, 2 IN 1 D), 6 GM (3 GM, 2 IN 1 D), ORAL
     Route: 048
     Dates: start: 20110204
  4. XYREM [Suspect]
     Indication: CATAPLEXY
     Dosage: 4.5 GM (2.25 GM, 2 IN 1 D), 6 GM (3 GM, 2 IN 1 D), ORAL
     Route: 048
     Dates: start: 20030708, end: 20040222
  5. XYREM [Suspect]
     Indication: CATAPLEXY
     Dosage: 4.5 GM (2.25 GM, 2 IN 1 D), 6 GM (3 GM, 2 IN 1 D), ORAL
     Route: 048
     Dates: start: 20040223, end: 20101201
  6. UNSPECIFIED PAIN MEDICATION [Suspect]
     Dates: end: 20040101
  7. PAIN MEDICATION [Concomitant]

REACTIONS (22)
  - ARTHRALGIA [None]
  - ABDOMINAL DISCOMFORT [None]
  - OSTEOARTHRITIS [None]
  - DRUG INTERACTION [None]
  - TREMOR [None]
  - FALL [None]
  - CONDITION AGGRAVATED [None]
  - INCONTINENCE [None]
  - SLEEP APNOEA SYNDROME [None]
  - DIZZINESS [None]
  - PROCEDURAL PAIN [None]
  - JOINT SWELLING [None]
  - POLLAKIURIA [None]
  - GAIT DISTURBANCE [None]
  - ASTHENIA [None]
  - CATAPLEXY [None]
  - DRY MOUTH [None]
  - CONSTIPATION [None]
  - VISION BLURRED [None]
  - JOINT INJURY [None]
  - HALLUCINATION [None]
  - PALPITATIONS [None]
